FAERS Safety Report 23391019 (Version 1)
Quarter: 2024Q1

REPORT INFORMATION
  Report Type: Report from Study
  Country: US (occurrence: None)
  Receive Date: 20240111
  Receipt Date: 20240111
  Transmission Date: 20240410
  Serious: Yes (Other)
  Sender: FDA-Public Use
  Company Number: 2024A002423

PATIENT
  Sex: Male
  Weight: 77.1 kg

DRUGS (22)
  1. KOSELUGO [Suspect]
     Active Substance: SELUMETINIB
     Indication: Neurofibromatosis
     Route: 048
  2. KOSELUGO [Suspect]
     Active Substance: SELUMETINIB
     Indication: Neurofibromatosis
     Route: 048
  3. NITROUS OXIDE [Concomitant]
     Active Substance: NITROUS OXIDE
  4. MORPHINE [Concomitant]
     Active Substance: MORPHINE
  5. ALBUTEROL [Concomitant]
     Active Substance: ALBUTEROL
  6. AMLODIPINE [Concomitant]
     Active Substance: AMLODIPINE BESYLATE
  7. ARIPIPRAZOLE [Concomitant]
     Active Substance: ARIPIPRAZOLE
  8. ASPIRIN [Concomitant]
     Active Substance: ASPIRIN
  9. CLINDAMYCIN [Concomitant]
     Active Substance: CLINDAMYCIN
  10. DRISDOL [Concomitant]
     Active Substance: ERGOCALCIFEROL
  11. ESOMEPRAZOLE [Concomitant]
     Active Substance: ESOMEPRAZOLE
  12. EZETIMIBE [Concomitant]
     Active Substance: EZETIMIBE
  13. FLUCONAZOLE [Concomitant]
     Active Substance: FLUCONAZOLE
  14. GABAPENTIN [Concomitant]
     Active Substance: GABAPENTIN
  15. KETOCONAZOLE [Concomitant]
     Active Substance: KETOCONAZOLE
  16. LACTOBACILLUS ACIDOPHILUS [Concomitant]
     Active Substance: LACTOBACILLUS ACIDOPHILUS
  17. METOPROLOL [Concomitant]
     Active Substance: METOPROLOL
  18. ONDANSETRON [Concomitant]
     Active Substance: ONDANSETRON
  19. PROMETHAZINE [Concomitant]
     Active Substance: PROMETHAZINE HYDROCHLORIDE
  20. SERTRALINE [Concomitant]
     Active Substance: SERTRALINE HYDROCHLORIDE
  21. TOPIRAMATE [Concomitant]
     Active Substance: TOPIRAMATE
  22. VALACYCLOVIR [Concomitant]
     Active Substance: VALACYCLOVIR HYDROCHLORIDE

REACTIONS (1)
  - Head and neck cancer [Not Recovered/Not Resolved]
